FAERS Safety Report 6039927-6 (Version None)
Quarter: 2009Q1

REPORT INFORMATION
  Report Type: 
  Country: None (occurrence: None)
  Receive Date: 20090116
  Receipt Date: 20080822
  Transmission Date: 20090719
  Serious: No
  Sender: FDA-Public Use
  Company Number: US-BRISTOL-MYERS SQUIBB COMPANY-12854709

PATIENT
  Age: 49 Year
  Sex: Male
  Weight: 57 kg

DRUGS (5)
  1. ABILIFY [Suspect]
     Indication: NERVOUSNESS
     Route: 048
  2. ABILIFY [Suspect]
     Indication: ANXIETY
     Route: 048
  3. ABILIFY [Suspect]
     Indication: SCHIZOPHRENIA, PARANOID TYPE
     Route: 048
  4. VASOTEC [Concomitant]
  5. ZOCOR [Concomitant]

REACTIONS (3)
  - LYMPHADENOPATHY [None]
  - TREMOR [None]
  - WEIGHT DECREASED [None]
